FAERS Safety Report 15080412 (Version 1)
Quarter: 2018Q3

REPORT INFORMATION
  Report Type: Spontaneous
  Country: US (occurrence: US)
  Receive Date: 20180628
  Receipt Date: 20180628
  Transmission Date: 20181010
  Serious: No
  Sender: FDA-Public Use
  Company Number: US-THE MEDICINES COMPANY-US-MDCO-17-00245

PATIENT
  Sex: Female

DRUGS (1)
  1. IONSYS [Suspect]
     Active Substance: FENTANYL HYDROCHLORIDE
     Indication: PRODUCT USED FOR UNKNOWN INDICATION
     Dosage: NOT REPORTED
     Dates: start: 20170524

REACTIONS (3)
  - Inadequate analgesia [Unknown]
  - Device use error [Unknown]
  - Device failure [Unknown]

NARRATIVE: CASE EVENT DATE: 20170524
